FAERS Safety Report 7687343-3 (Version None)
Quarter: 2011Q3

REPORT INFORMATION
  Report Type: 
  Country: None (occurrence: None)
  Receive Date: 20110816
  Receipt Date: 20110812
  Transmission Date: 20111222
  Serious: Yes (Other)
  Sender: FDA-Public Use
  Company Number: AU-BAYER-2011-072336

PATIENT
  Age: 31 Year
  Sex: Female

DRUGS (4)
  1. CONTRACEPTIVES NOS [Concomitant]
  2. VENTOLIN HFA [Concomitant]
  3. GADAVIST [Suspect]
     Indication: NUCLEAR MAGNETIC RESONANCE IMAGING BRAIN
     Dosage: UNK
     Route: 042
     Dates: start: 20110812, end: 20110812
  4. VENTOLIN HFA [Concomitant]

REACTIONS (3)
  - PRURITUS [None]
  - URTICARIA [None]
  - ASTHMA [None]
